FAERS Safety Report 21332080 (Version 1)
Quarter: 2022Q3

REPORT INFORMATION
  Report Type: Spontaneous
  Country: US (occurrence: None)
  Receive Date: 20220913
  Receipt Date: 20220913
  Transmission Date: 20221026
  Serious: Yes (Death)
  Sender: FDA-Public Use
  Company Number: None

PATIENT
  Age: 80 Year
  Sex: Male
  Weight: 68.49 kg

DRUGS (20)
  1. ZARXIO [Suspect]
     Active Substance: FILGRASTIM-SNDZ
     Indication: Lung neoplasm malignant
     Dosage: OTHER FREQUENCY : DAILY 10 DAY;?
     Route: 058
     Dates: start: 202206, end: 20220913
  2. CARBOPLATIN 450MG/45ML VISL [Concomitant]
     Dosage: OTHER FREQUENCY : ON DAY 15;?IV - EVERY 28 DAYS
     Route: 042
     Dates: start: 202206, end: 20220913
  3. FOSAPREPITAN [Concomitant]
  4. PACLITAXEL [Concomitant]
     Active Substance: PACLITAXEL
  5. AMARYL [Concomitant]
     Active Substance: GLIMEPIRIDE
  6. ATORVASTATIN [Concomitant]
     Active Substance: ATORVASTATIN
  7. CEFUROXIME [Concomitant]
     Active Substance: CEFUROXIME
  8. COMBIGAN [Concomitant]
     Active Substance: BRIMONIDINE TARTRATE\TIMOLOL MALEATE
  9. GABAPENTIN [Concomitant]
     Active Substance: GABAPENTIN
  10. HUMULIN NOS [Concomitant]
     Active Substance: INSULIN HUMAN
  11. HYDROCHLOROTHIAZIDE [Concomitant]
     Active Substance: HYDROCHLOROTHIAZIDE
  12. ISOSORBIDE MONONITRATE [Concomitant]
     Active Substance: ISOSORBIDE MONONITRATE
  13. LANTUS [Concomitant]
     Active Substance: INSULIN GLARGINE
  14. LATANOPROST [Concomitant]
     Active Substance: LATANOPROST
  15. LOSARTAN [Concomitant]
     Active Substance: LOSARTAN
  16. METFORMIN [Concomitant]
     Active Substance: METFORMIN HYDROCHLORIDE
  17. ONDANSETRON [Concomitant]
     Active Substance: ONDANSETRON
  18. PALONOSETRON [Concomitant]
     Active Substance: PALONOSETRON
  19. PLAVIX [Concomitant]
     Active Substance: CLOPIDOGREL BISULFATE
  20. STIOLTO RESPIMAT [Concomitant]
     Active Substance: OLODATEROL HYDROCHLORIDE\TIOTROPIUM BROMIDE MONOHYDRATE

REACTIONS (1)
  - Death [None]

NARRATIVE: CASE EVENT DATE: 20220913
